FAERS Safety Report 19944110 (Version 1)
Quarter: 2021Q4

REPORT INFORMATION
  Report Type: Spontaneous
  Country: US (occurrence: US)
  Receive Date: 20211011
  Receipt Date: 20211011
  Transmission Date: 20220303
  Serious: No
  Sender: FDA-Public Use
  Company Number: US-BOEHRINGERINGELHEIM-2021-BI-131889

PATIENT
  Age: 71 Year

DRUGS (1)
  1. JARDIANCE [Suspect]
     Active Substance: EMPAGLIFLOZIN
     Indication: Type 2 diabetes mellitus
     Dosage: 25 MG ONCE A DAY
     Dates: start: 20210910, end: 20210930

REACTIONS (1)
  - Perineal disorder [Recovered/Resolved]

NARRATIVE: CASE EVENT DATE: 20210915
